FAERS Safety Report 12665601 (Version 1)
Quarter: 2016Q3

REPORT INFORMATION
  Report Type: Spontaneous
  Country: US (occurrence: US)
  Receive Date: 20160818
  Receipt Date: 20160818
  Transmission Date: 20161109
  Serious: Yes (Death, Other)
  Sender: FDA-Public Use
  Company Number: US-TEVA-686097USA

PATIENT
  Age: 91 Year
  Sex: Male

DRUGS (1)
  1. AZITHROMYCIN ANHYDROUS. [Suspect]
     Active Substance: AZITHROMYCIN ANHYDROUS
     Route: 042

REACTIONS (4)
  - Electrocardiogram QT prolonged [Unknown]
  - Cardiac arrest [Fatal]
  - Arrhythmia [Fatal]
  - Torsade de pointes [Recovered/Resolved]
